FAERS Safety Report 12433732 (Version 3)
Quarter: 2016Q3

REPORT INFORMATION
  Report Type: Spontaneous
  Country: US (occurrence: US)
  Receive Date: 20160603
  Receipt Date: 20160721
  Transmission Date: 20161109
  Serious: Yes (Hospitalization, Other)
  Sender: FDA-Public Use
  Company Number: US-JNJFOC-20160600530

PATIENT
  Age: 54 Year
  Sex: Male
  Weight: 68.95 kg

DRUGS (19)
  1. RISPERDAL CONSTA [Suspect]
     Active Substance: RISPERIDONE
     Indication: SCHIZOPHRENIA
     Route: 030
  2. BENZTROPINE [Concomitant]
     Active Substance: BENZTROPINE
     Indication: ANXIETY
     Dosage: EVERY MORNING AND NIGHT
     Route: 048
  3. LEVOTHYROXINE. [Concomitant]
     Active Substance: LEVOTHYROXINE
     Indication: HYPOTHYROIDISM
     Route: 048
  4. MILK OF MAGNESIA [Concomitant]
     Active Substance: MAGNESIUM HYDROXIDE
     Indication: CONSTIPATION
     Dosage: ONCE EVERY 24 HOURS AS NEEDED
     Route: 048
  5. BENADRYL [Concomitant]
     Active Substance: DIPHENHYDRAMINE HYDROCHLORIDE
     Indication: MULTIPLE ALLERGIES
     Dosage: AS NEEDED
     Route: 048
  6. RISPERDAL CONSTA [Suspect]
     Active Substance: RISPERIDONE
     Indication: SCHIZOPHRENIA
     Dosage: INJECT 2 ML EVERY 2 WEEKS
     Route: 030
     Dates: start: 20151228
  7. TYLENOL [Concomitant]
     Active Substance: ACETAMINOPHEN
     Indication: PAIN
     Dosage: TWICE EVERY 4-6 HOURS AS NECESSARY
     Route: 048
  8. NICOTINE. [Concomitant]
     Active Substance: NICOTINE
     Indication: SMOKING CESSATION THERAPY
     Dosage: AS NEEDED
     Route: 048
  9. DIVALPROEX SODIUM. [Concomitant]
     Active Substance: DIVALPROEX SODIUM
     Route: 048
  10. ALUMINIUM HYDROXIDE W/MAGNESIUM HYDROXIDE [Concomitant]
     Active Substance: ALUMINUM HYDROXIDE\MAGNESIUM HYDROXIDE
     Indication: CONSTIPATION
     Dosage: EVERY 4-6 HOURS AS NEEDED
     Route: 048
  11. PRILOSEC [Concomitant]
     Active Substance: OMEPRAZOLE MAGNESIUM
     Indication: GASTROOESOPHAGEAL REFLUX DISEASE
     Dosage: IN THE MORNING
     Route: 048
  12. TYLENOL [Concomitant]
     Active Substance: ACETAMINOPHEN
     Indication: PAIN
     Dosage: ONCE EVERY 4-6 HOURS AS NECESSARY
     Route: 048
  13. COGENTIN [Concomitant]
     Active Substance: BENZTROPINE MESYLATE
     Indication: ANXIETY
     Dosage: HALF EVERY MORNING AND NIGHT
     Route: 065
  14. VITAMIN D [Concomitant]
     Active Substance: CHOLECALCIFEROL
     Indication: VITAMIN SUPPLEMENTATION
     Dosage: 50,000 UNITS
     Route: 048
  15. IBUPROFEN. [Concomitant]
     Active Substance: IBUPROFEN
     Indication: PAIN
     Dosage: ONCE EVERY 6 HOURS AS NEEDED WITH FOOD
     Route: 048
  16. AMANTADINE [Concomitant]
     Active Substance: AMANTADINE
     Dosage: IN THE MORNING
     Route: 048
  17. BENZTROPINE [Concomitant]
     Active Substance: BENZTROPINE
     Indication: ANXIETY
     Route: 048
  18. DOXAZOSIN [Concomitant]
     Active Substance: DOXAZOSIN\DOXAZOSIN MESYLATE
     Route: 048
  19. KAOPECTATE REGULAR STRENGTH CHERRY FLAVOR [Concomitant]
     Active Substance: BISMUTH SUBSALICYLATE
     Dosage: EVERY 4-6 HOURS
     Route: 048

REACTIONS (4)
  - Drug dose omission [Unknown]
  - Hospitalisation [Not Recovered/Not Resolved]
  - Device breakage [Unknown]
  - Schizophrenia [Recovered/Resolved]

NARRATIVE: CASE EVENT DATE: 20151214
